FAERS Safety Report 16686925 (Version 1)
Quarter: 2019Q3

REPORT INFORMATION
  Report Type: Spontaneous
  Country: GB (occurrence: GB)
  Receive Date: 20190809
  Receipt Date: 20190809
  Transmission Date: 20191004
  Serious: Yes (Other)
  Sender: FDA-Public Use
  Company Number: GB-TEVA-2019-GB-1089418

PATIENT
  Age: 31 Year
  Sex: Male
  Weight: 74 kg

DRUGS (2)
  1. BETAMETHASONE VALERATE. [Concomitant]
     Active Substance: BETAMETHASONE VALERATE
     Dosage: 2  DOSAGE FORMS, 1 DAYS?APPLY.
     Dates: start: 20190610, end: 20190624
  2. OFLOXACIN. [Suspect]
     Active Substance: OFLOXACIN
     Route: 048
     Dates: start: 20190618, end: 20190624

REACTIONS (5)
  - Feeling hot [Recovered/Resolved]
  - Headache [Recovered/Resolved]
  - Tachycardia [Recovered/Resolved]
  - Rash erythematous [Recovered/Resolved]
  - Malaise [Recovering/Resolving]

NARRATIVE: CASE EVENT DATE: 20190618
